FAERS Safety Report 19951626 (Version 2)
Quarter: 2021Q4

REPORT INFORMATION
  Report Type: Spontaneous
  Country: US (occurrence: US)
  Receive Date: 20211013
  Receipt Date: 20211117
  Transmission Date: 20220303
  Serious: No
  Sender: FDA-Public Use
  Company Number: US-PFIZER INC-2020003326

PATIENT
  Age: 13 Year
  Sex: Male

DRUGS (2)
  1. GENOTROPIN [Suspect]
     Active Substance: SOMATROPIN
     Indication: Hormone therapy
     Dosage: 0.9 MG, DAILY
     Dates: start: 201502
  2. GENOTROPIN [Suspect]
     Active Substance: SOMATROPIN
     Indication: Growth failure
     Dosage: INJECT 1.2 MG SUBCUTANEOUSLY EVERY NIGHT AT BEDTIME.
     Route: 058
     Dates: start: 201502

REACTIONS (3)
  - Drug dose omission by device [Unknown]
  - Device information output issue [Unknown]
  - Device breakage [Unknown]

NARRATIVE: CASE EVENT DATE: 20210912
